FAERS Safety Report 22094405 (Version 1)
Quarter: 2023Q1

REPORT INFORMATION
  Report Type: Spontaneous
  Country: DE (occurrence: DE)
  Receive Date: 20230314
  Receipt Date: 20230314
  Transmission Date: 20230418
  Serious: Yes (Other)
  Sender: FDA-Public Use
  Company Number: DE-Dr. FALK Pharma GmbH-SA-058-23

PATIENT
  Sex: Female

DRUGS (1)
  1. MESALAMINE [Suspect]
     Active Substance: MESALAMINE
     Indication: Product used for unknown indication
     Dosage: UNK
     Dates: start: 2013, end: 2018

REACTIONS (3)
  - Pancreatitis [Unknown]
  - Headache [Unknown]
  - Drug ineffective [Unknown]

NARRATIVE: CASE EVENT DATE: 20180101
